FAERS Safety Report 14074361 (Version 2)
Quarter: 2018Q1

REPORT INFORMATION
  Report Type: Spontaneous
  Country: IT (occurrence: IT)
  Receive Date: 20171011
  Receipt Date: 20180228
  Transmission Date: 20180508
  Serious: Yes (Hospitalization)
  Sender: FDA-Public Use
  Company Number: IT-GLAXOSMITHKLINE-IT2017GSK155501

PATIENT
  Age: 72 Year
  Sex: Female

DRUGS (4)
  1. MANTADAN [Suspect]
     Active Substance: AMANTADINE HYDROCHLORIDE
     Indication: PARKINSON^S DISEASE
     Dosage: 1.5 DF, QD
     Route: 048
     Dates: start: 20100601, end: 20170913
  2. PAROXETIN [Concomitant]
     Active Substance: PAROXETINE HYDROCHLORIDE
     Indication: PRODUCT USED FOR UNKNOWN INDICATION
     Dosage: 20 MG, UNK
     Route: 065
  3. SINEMET [Concomitant]
     Active Substance: CARBIDOPA\LEVODOPA
     Indication: PRODUCT USED FOR UNKNOWN INDICATION
     Dosage: 4 DF, UNK
  4. REQUIP [Suspect]
     Active Substance: ROPINIROLE HYDROCHLORIDE
     Indication: PARKINSON^S DISEASE
     Dosage: 2 MG, QD
     Route: 048
     Dates: start: 20100601, end: 20170913

REACTIONS (5)
  - Agitation [Recovering/Resolving]
  - Abnormal dreams [Recovering/Resolving]
  - Orthostatic hypotension [Recovering/Resolving]
  - Sleep disorder [Recovering/Resolving]
  - Jealous delusion [Recovering/Resolving]

NARRATIVE: CASE EVENT DATE: 20170913
